FAERS Safety Report 10109882 (Version 1)
Quarter: 2014Q2

REPORT INFORMATION
  Report Type: Spontaneous
  Country: US (occurrence: US)
  Receive Date: 20140425
  Receipt Date: 20140425
  Transmission Date: 20141212
  Serious: Yes (Other)
  Sender: FDA-Public Use
  Company Number: US-FRI-1000066723

PATIENT
  Age: 19 Year
  Sex: Female

DRUGS (1)
  1. CELEXA [Suspect]
     Dosage: 40MG
     Route: 048

REACTIONS (2)
  - Road traffic accident [Unknown]
  - Unevaluable event [Unknown]
